FAERS Safety Report 7329517-7 (Version None)
Quarter: 2011Q1

REPORT INFORMATION
  Report Type: 
  Country: None (occurrence: None)
  Receive Date: 20110303
  Receipt Date: 20110228
  Transmission Date: 20110831
  Serious: Yes (Life-Threatening, Other)
  Sender: FDA-Public Use
  Company Number: PHHY2011IT16465

PATIENT
  Sex: Male

DRUGS (4)
  1. HYDRATHION [Concomitant]
     Indication: NEPHROTIC SYNDROME
  2. ALBUMIN (HUMAN) [Concomitant]
     Indication: NEPHROTIC SYNDROME
  3. CICLOSPORIN [Suspect]
     Dosage: 40 MG, UNK
  4. SANDIMMUNE [Suspect]
     Indication: NEPHROTIC SYNDROME
     Dosage: 800 MG, UNK
     Route: 048
     Dates: start: 20100827, end: 20100830

REACTIONS (5)
  - SOPOR [None]
  - BLOOD ELECTROLYTES ABNORMAL [None]
  - OVERDOSE [None]
  - INCORRECT DOSE ADMINISTERED [None]
  - DRUG DISPENSING ERROR [None]
